FAERS Safety Report 23372621 (Version 2)
Quarter: 2025Q4

REPORT INFORMATION
  Report Type: Spontaneous
  Country: EU (occurrence: EU)
  Receive Date: 20240105
  Receipt Date: 20251212
  Transmission Date: 20260118
  Serious: Yes (Other)
  Sender: SANDOZ
  Company Number: EU-AUROBINDO-AUR-APL-2023-042955

PATIENT
  Age: 65 Year
  Sex: Male

DRUGS (13)
  1. AMITRIPTYLINE HYDROCHLORIDE [Suspect]
     Active Substance: AMITRIPTYLINE HYDROCHLORIDE
     Indication: Insomnia
     Dosage: 25 MG
     Route: 065
     Dates: start: 20180911, end: 20181029
  2. GABAPENTIN [Suspect]
     Active Substance: GABAPENTIN
     Indication: Product used for unknown indication
     Dosage: 300 MILLIGRAM
     Route: 065
     Dates: start: 20181230, end: 20190103
  3. MIRTAZAPINE [Suspect]
     Active Substance: MIRTAZAPINE
     Indication: Insomnia
     Dosage: 15 MG
     Route: 065
     Dates: start: 20180801, end: 20191028
  4. TRAMADOL HYDROCHLORIDE [Suspect]
     Active Substance: TRAMADOL HYDROCHLORIDE
     Indication: Pain
     Dosage: UNK
     Route: 065
     Dates: start: 20181027, end: 20211231
  5. ZOPICLONE [Suspect]
     Active Substance: ZOPICLONE
     Indication: Sleep disorder
     Dosage: 7.5 MILLIGRAM,(2017 AND 2023)
     Route: 065
     Dates: end: 2021
  6. ZOPICLONE [Suspect]
     Active Substance: ZOPICLONE
     Indication: Sleep disorder
     Dosage: 3.75 MILLIGRAM,(2017 AND 2023)
     Route: 065
  7. CALCIUM [Concomitant]
     Active Substance: CALCIUM
     Indication: Diffuse idiopathic skeletal hyperostosis
     Dosage: 1000 MILLIGRAM, ONCE A DAY
     Route: 065
  8. DEXTROAMPHETAMINE [Concomitant]
     Active Substance: DEXTROAMPHETAMINE
     Indication: Product used for unknown indication
     Dosage: 2.5 MILLIGRAM,(2-3 TABLETS AS NEEDED)
     Route: 065
  9. HYDROCHLOROTHIAZIDE [Concomitant]
     Active Substance: HYDROCHLOROTHIAZIDE
     Indication: Hypertension
     Dosage: 12.5 MILLIGRAM, ONCE A DAY
     Route: 065
  10. MELATONIN [Concomitant]
     Active Substance: MELATONIN
     Indication: Insomnia
     Dosage: 1200 UGR
     Route: 065
  11. ACETAMINOPHEN [Concomitant]
     Active Substance: ACETAMINOPHEN
     Indication: Restless legs syndrome
     Dosage: 1000 MILLIGRAM, TWO TIMES A DAY
     Route: 065
  12. ACETAMINOPHEN [Concomitant]
     Active Substance: ACETAMINOPHEN
     Indication: Diffuse idiopathic skeletal hyperostosis
  13. PERINDOPRIL [Concomitant]
     Active Substance: PERINDOPRIL
     Indication: Hypertension
     Dosage: 8 MILLIGRAM, ONCE A DAY
     Route: 065

REACTIONS (9)
  - Dependence [Recovered/Resolved]
  - Sleep disorder [Recovered/Resolved]
  - Intentional underdose [Unknown]
  - Depression [Recovered/Resolved]
  - Somnolence [Unknown]
  - Confusional state [Recovered/Resolved]
  - Therapeutic product effect decreased [Recovered/Resolved]
  - Mood swings [Unknown]
  - Mood altered [Recovered/Resolved]
